FAERS Safety Report 5040723-7 (Version None)
Quarter: 2006Q3

REPORT INFORMATION
  Report Type: 
  Country: None (occurrence: None)
  Receive Date: 20060703
  Receipt Date: 20060622
  Transmission Date: 20061208
  Serious: Yes (Hospitalization)
  Sender: FDA-Public Use
  Company Number: PHHO2006FR10211

PATIENT
  Age: 90 Year
  Sex: Female

DRUGS (11)
  1. ESIDRIX [Suspect]
     Indication: HYPERTENSION
     Dosage: 12.5 MG, UNK
     Route: 048
  2. RAMIPRIL [Suspect]
     Indication: HYPERTENSION
     Dosage: 2.5 MG, QD
     Route: 048
  3. MEPRONIZINE [Suspect]
     Indication: DEPRESSION
  4. TERCIAN [Suspect]
     Indication: DEPRESSION
     Dosage: 16 DRP, QD
     Route: 048
  5. HEPARIN [Concomitant]
     Indication: DEEP VEIN THROMBOSIS
     Dosage: 1.4 ML (0.7)
     Route: 058
     Dates: start: 20060201, end: 20060208
  6. EFFEXOR [Concomitant]
     Indication: DEPRESSION
     Route: 048
  7. ANAFRANIL [Concomitant]
     Indication: DEPRESSION
  8. TRANXENE [Concomitant]
     Indication: DEPRESSION
     Route: 048
  9. COUMADIN [Concomitant]
     Indication: DEEP VEIN THROMBOSIS
     Dates: start: 20060201
  10. DIGOXIN [Concomitant]
     Indication: ATRIAL FIBRILLATION
     Dosage: 124 MG, UNK
     Route: 048
  11. NEXIUM [Concomitant]
     Dosage: 20 MG, UNK
     Route: 048

REACTIONS (15)
  - BLOOD CREATININE INCREASED [None]
  - DEMENTIA [None]
  - EXTRAPYRAMIDAL DISORDER [None]
  - FACIAL PALSY [None]
  - FALL [None]
  - HAEMOGLOBIN DECREASED [None]
  - HEAD INJURY [None]
  - HYPERHIDROSIS [None]
  - INJURY [None]
  - LOSS OF CONSCIOUSNESS [None]
  - MALAISE [None]
  - MOTOR DYSFUNCTION [None]
  - ORTHOSTATIC HYPOTENSION [None]
  - PALLOR [None]
  - PARALYSIS [None]
